FAERS Safety Report 9370861 (Version 2)
Quarter: 2013Q3

REPORT INFORMATION
  Report Type: Spontaneous
  Country: US (occurrence: US)
  Receive Date: 20130626
  Receipt Date: 20130815
  Transmission Date: 20140515
  Serious: Yes (Hospitalization, Other)
  Sender: FDA-Public Use
  Company Number: US-009507513-1306USA009935

PATIENT
  Age: 48 Year
  Sex: Male

DRUGS (1)
  1. ELAVIL [Suspect]
     Route: 048

REACTIONS (9)
  - Cardiac arrest [Unknown]
  - Bradycardia [Recovering/Resolving]
  - Loss of consciousness [Recovering/Resolving]
  - Plasmapheresis [Recovering/Resolving]
  - Endotracheal intubation [Recovering/Resolving]
  - Cardiac pacemaker insertion [Recovering/Resolving]
  - Hypotension [Recovering/Resolving]
  - Toxicity to various agents [Recovering/Resolving]
  - Overdose [Unknown]
